FAERS Safety Report 13197360 (Version 2)
Quarter: 2017Q2

REPORT INFORMATION
  Report Type: Report from Study
  Country: US (occurrence: US)
  Receive Date: 20170208
  Receipt Date: 20170606
  Transmission Date: 20170830
  Serious: Yes (Hospitalization)
  Sender: FDA-Public Use
  Company Number: US-JNJFOC-20170206388

PATIENT
  Sex: Female

DRUGS (6)
  1. VITAMIN B12 [Concomitant]
     Active Substance: CYANOCOBALAMIN
  2. VITAMIN D [Concomitant]
     Active Substance: CHOLECALCIFEROL
  3. NEXIUM [Concomitant]
     Active Substance: ESOMEPRAZOLE MAGNESIUM
  4. TRAVATAN Z [Concomitant]
     Active Substance: TRAVOPROST
  5. IMBRUVICA [Suspect]
     Active Substance: IBRUTINIB
     Indication: NON-HODGKIN^S LYMPHOMA
     Route: 048
     Dates: start: 20160204
  6. TENORMIN [Concomitant]
     Active Substance: ATENOLOL

REACTIONS (1)
  - Small intestinal obstruction [Recovered/Resolved]
